FAERS Safety Report 14303206 (Version 3)
Quarter: 2018Q1

REPORT INFORMATION
  Report Type: Spontaneous
  Country: JP (occurrence: JP)
  Receive Date: 20171219
  Receipt Date: 20180205
  Transmission Date: 20180509
  Serious: Yes (Hospitalization)
  Sender: FDA-Public Use
  Company Number: JP-ELI_LILLY_AND_COMPANY-JP201712006638

PATIENT
  Age: 56 Year
  Sex: Male

DRUGS (5)
  1. APIDRA [Concomitant]
     Active Substance: INSULIN GLULISINE
     Indication: DIABETES MELLITUS
     Dosage: 8 IU, DAILY
     Route: 058
     Dates: start: 201603
  2. JUVELA N [Concomitant]
     Active Substance: TOCOPHERYL NICOTINATE, D-.ALPHA.
     Dosage: 600 MG, DAILY
     Route: 048
     Dates: start: 201603
  3. INSULIN GLARGINE [Suspect]
     Active Substance: INSULIN GLARGINE
     Indication: DIABETES MELLITUS
     Dosage: 18 IU, DAILY
     Route: 058
     Dates: start: 201603
  4. APIDRA [Concomitant]
     Active Substance: INSULIN GLULISINE
     Dosage: 10 IU, TID
     Route: 058
  5. TRULICITY [Suspect]
     Active Substance: DULAGLUTIDE
     Indication: DIABETES MELLITUS
     Dosage: 0.75 MG, DAILY
     Route: 058
     Dates: start: 20171122, end: 20171206

REACTIONS (3)
  - Diabetic ketoacidosis [Recovering/Resolving]
  - Pyrexia [Recovered/Resolved]
  - White blood cell count increased [Unknown]

NARRATIVE: CASE EVENT DATE: 20171208
